FAERS Safety Report 6270324-4 (Version None)
Quarter: 2009Q3

REPORT INFORMATION
  Report Type: 
  Country: None (occurrence: None)
  Receive Date: 20090716
  Receipt Date: 20090712
  Transmission Date: 20100115
  Serious: Yes (Life-Threatening, Hospitalization)
  Sender: FDA-Public Use
  Company Number: A0794144A

PATIENT
  Sex: Male
  Weight: 80 kg

DRUGS (3)
  1. AVODART [Suspect]
     Indication: DRUG USE FOR UNKNOWN INDICATION
     Route: 065
  2. XATRAL [Concomitant]
     Indication: DRUG USE FOR UNKNOWN INDICATION
     Route: 065
  3. MULTI-VITAMIN [Concomitant]

REACTIONS (11)
  - CARDIAC ARREST [None]
  - CARDIAC MASSAGE [None]
  - CONVULSION [None]
  - EPILEPSY [None]
  - FATIGUE [None]
  - HYPOTENSION [None]
  - LOSS OF CONSCIOUSNESS [None]
  - PULSE ABSENT [None]
  - RESUSCITATION [None]
  - SOMNOLENCE [None]
  - URINARY INCONTINENCE [None]
